FAERS Safety Report 5788182-0 (Version None)
Quarter: 2008Q2

REPORT INFORMATION
  Report Type: 
  Country: None (occurrence: None)
  Receive Date: 20080623
  Receipt Date: 20080611
  Transmission Date: 20081010
  Serious: Yes (Hospitalization)
  Sender: FDA-Public Use
  Company Number: 235650J08USA

PATIENT
  Age: 41 Year
  Sex: Female
  Weight: 102.0593 kg

DRUGS (6)
  1. REBIF [Suspect]
     Indication: MULTIPLE SCLEROSIS
     Dates: start: 20070301, end: 20070707
  2. UNSPECIFIED BIRTH CONTROL MEDICATION (ORAL CONTRACEPTIVE NOS) [Suspect]
     Indication: ENDOMETRIOSIS
     Dates: start: 19960101, end: 20070601
  3. INDOMETHACIN [Concomitant]
  4. METFORMIN HCL [Concomitant]
  5. UNSPECIFIED HIGH BLOOD PRESSURE MEDICATION (ANTIHYPERTENSIVES) [Concomitant]
  6. LISINOPRIL [Concomitant]

REACTIONS (5)
  - BLOOD PRESSURE INCREASED [None]
  - DEEP VEIN THROMBOSIS [None]
  - HEART RATE INCREASED [None]
  - MUSCLE SPASMS [None]
  - URTICARIA [None]
